FAERS Safety Report 18598450 (Version 4)
Quarter: 2020Q4

REPORT INFORMATION
  Report Type: Spontaneous
  Country: JP (occurrence: JP)
  Receive Date: 20201210
  Receipt Date: 20201229
  Transmission Date: 20210114
  Serious: Yes (Other)
  Sender: FDA-Public Use
  Company Number: JP-VIIV HEALTHCARE LIMITED-JP2020JPN240102

PATIENT
  Sex: Male

DRUGS (8)
  1. TIVICAY [Suspect]
     Active Substance: DOLUTEGRAVIR SODIUM
     Dosage: UNK
     Route: 048
     Dates: start: 20201216
  2. TIVICAY [Suspect]
     Active Substance: DOLUTEGRAVIR SODIUM
     Indication: HIV INFECTION
     Dosage: UNK
     Route: 048
     Dates: start: 20201203, end: 20201203
  3. DESCOVY [Suspect]
     Active Substance: EMTRICITABINE\TENOFOVIR ALAFENAMIDE FUMARATE
     Dosage: UNK
     Route: 048
     Dates: start: 20201216
  4. SULFAMETHOXAZOLE/TRIMETHOPRIM TABLETS [Suspect]
     Active Substance: SULFAMETHOXAZOLE\TRIMETHOPRIM
     Indication: PNEUMOCYSTIS JIROVECII PNEUMONIA
     Dosage: UNK
     Route: 048
     Dates: start: 20201203, end: 20201203
  5. SAMTIREL [Concomitant]
     Active Substance: ATOVAQUONE
     Indication: PROPHYLAXIS
     Dosage: UNK
     Route: 048
  6. SULFAMETHOXAZOLE/TRIMETHOPRIM TABLETS [Suspect]
     Active Substance: SULFAMETHOXAZOLE\TRIMETHOPRIM
     Dosage: UNK
  7. SAMTIREL [Concomitant]
     Active Substance: ATOVAQUONE
     Indication: PNEUMOCYSTIS JIROVECII PNEUMONIA
     Dosage: UNK
     Route: 048
  8. DESCOVY [Suspect]
     Active Substance: EMTRICITABINE\TENOFOVIR ALAFENAMIDE FUMARATE
     Indication: HIV INFECTION
     Dosage: UNK
     Route: 048
     Dates: start: 20201203, end: 20201203

REACTIONS (4)
  - Pyrexia [Recovered/Resolved]
  - Pain of skin [Recovered/Resolved]
  - Vomiting [Recovered/Resolved]
  - Anaphylactoid reaction [Recovered/Resolved]

NARRATIVE: CASE EVENT DATE: 20201203
